FAERS Safety Report 7605200-5 (Version None)
Quarter: 2011Q3

REPORT INFORMATION
  Report Type: 
  Country: None (occurrence: None)
  Receive Date: 20110705
  Receipt Date: 20110622
  Transmission Date: 20111222
  Serious: Yes (Hospitalization)
  Sender: FDA-Public Use
  Company Number: 2011CP000121

PATIENT
  Age: 69 Year
  Sex: Male

DRUGS (3)
  1. ACETAMINOPHEN [Suspect]
     Dosage: 4 GM, QD, IV
     Route: 042
     Dates: start: 20110513, end: 20110514
  2. KETOPROFEN [Suspect]
     Dosage: 50 MG, 1 DAY, IV
     Route: 042
     Dates: start: 20110513, end: 20110515
  3. CLINDAMYCIN [Suspect]
     Dosage: IV
     Route: 042
     Dates: start: 20110513, end: 20110515

REACTIONS (6)
  - ARRHYTHMIA [None]
  - LOW CARDIAC OUTPUT SYNDROME [None]
  - HEPATOCELLULAR INJURY [None]
  - CHOLESTASIS [None]
  - CHEST PAIN [None]
  - CYTOLYTIC HEPATITIS [None]
